FAERS Safety Report 5371148-2 (Version None)
Quarter: 2007Q2

REPORT INFORMATION
  Report Type: 
  Country: None (occurrence: None)
  Receive Date: 20070622
  Receipt Date: 20070613
  Transmission Date: 20071010
  Serious: Yes (Hospitalization, Other)
  Sender: FDA-Public Use
  Company Number: CHNY2007DE01324

PATIENT
  Age: 69 Year
  Sex: Male
  Weight: 84 kg

DRUGS (1)
  1. LAMISIL [Suspect]
     Indication: TINEA PEDIS
     Dosage: SINGLE APPLICATION, TOPICAL
     Route: 061
     Dates: start: 20070312, end: 20070312

REACTIONS (29)
  - ABSCESS LIMB [None]
  - APPLICATION SITE ERYTHEMA [None]
  - APPLICATION SITE IRRITATION [None]
  - APPLICATION SITE VESICLES [None]
  - BLISTER [None]
  - BLISTER INFECTED [None]
  - BLOOD BLISTER [None]
  - BURNING SENSATION [None]
  - CHILLS [None]
  - CONDITION AGGRAVATED [None]
  - DRUG INEFFECTIVE [None]
  - ERYTHEMA [None]
  - FEELING HOT [None]
  - FUNGAL INFECTION [None]
  - HYPERTHERMIA [None]
  - INFLAMMATION [None]
  - LYMPHADENITIS [None]
  - LYMPHADENOPATHY [None]
  - LYMPHANGITIS [None]
  - OEDEMA PERIPHERAL [None]
  - PAIN [None]
  - PAIN IN EXTREMITY [None]
  - POISONING [None]
  - PRURITUS [None]
  - SEPSIS [None]
  - SKIN DISCOLOURATION [None]
  - SWELLING [None]
  - TINEA PEDIS [None]
  - WOUND [None]
